FAERS Safety Report 18468998 (Version 1)
Quarter: 2020Q4

REPORT INFORMATION
  Report Type: Spontaneous
  Country: US (occurrence: US)
  Receive Date: 20201105
  Receipt Date: 20201105
  Transmission Date: 20210114
  Serious: Yes (Other)
  Sender: FDA-Public Use
  Company Number: None

PATIENT
  Age: 82 Year
  Sex: Male
  Weight: 79.65 kg

DRUGS (19)
  1. ATORVASTATIN 10MG [Concomitant]
     Active Substance: ATORVASTATIN
  2. DIGOXIN 125MCG [Concomitant]
  3. PX FIBER 0.5MG [Concomitant]
  4. VITAMIN D 3000MG [Concomitant]
  5. MUTLIVITAMIN ADULT [Concomitant]
  6. FINASTERIDE 5MG [Concomitant]
     Active Substance: FINASTERIDE
  7. MAGNESIUM OXIDE 400MG [Concomitant]
     Active Substance: MAGNESIUM OXIDE
  8. ASPIRIN ADULT [Concomitant]
  9. ZOMETA 4MG/ 5ML [Concomitant]
  10. CAPECITABINE. [Suspect]
     Active Substance: CAPECITABINE
     Indication: COLON CANCER
     Route: 048
     Dates: start: 20200930
  11. IMODIUM A-D 2MG [Concomitant]
  12. ONDANSATRON HCL 8MG [Concomitant]
  13. LASIX 20MG [Concomitant]
  14. CAPECITABINE. [Suspect]
     Active Substance: CAPECITABINE
     Indication: HEPATIC CANCER
     Route: 048
     Dates: start: 20200930
  15. OSETEO BI-FLEX ADV DOUBLE ST [Concomitant]
  16. VITAMIN E COMPLETE 400 UNIT [Concomitant]
  17. GLIMEPIRIDE 2MG [Concomitant]
     Active Substance: GLIMEPIRIDE
  18. TAMSULOSIN HCL 0.4NG [Concomitant]
  19. VITAMIN C 500MG [Concomitant]

REACTIONS (3)
  - Muscular weakness [None]
  - Fall [None]
  - Peripheral coldness [None]

NARRATIVE: CASE EVENT DATE: 20201011
